FAERS Safety Report 7512904-1 (Version None)
Quarter: 2011Q2

REPORT INFORMATION
  Report Type: 
  Country: None (occurrence: None)
  Receive Date: 20110531
  Receipt Date: 20101129
  Transmission Date: 20111010
  Serious: No
  Sender: FDA-Public Use
  Company Number: GB-NOVEN-ALL1-2010-06185

PATIENT
  Sex: Male
  Weight: 27.211 kg

DRUGS (3)
  1. DAYTRANA [Suspect]
     Dosage: UNK MG, OTHER (1 AND 1/2 20 MG PATCH APPLIED ON WEEKENDS)
     Route: 062
     Dates: start: 20100801
  2. DAYTRANA [Suspect]
     Dosage: 40 MG,  OTHER (2-20 MG PATCHES  ON WEEKDAYS)
     Route: 062
     Dates: start: 20100801
  3. CLONIDINE [Concomitant]
     Dosage: 0.1 MG, 1X/DAY:QD(NIGHTLY)
     Route: 048

REACTIONS (3)
  - WRONG TECHNIQUE IN DRUG USAGE PROCESS [None]
  - NO ADVERSE EVENT [None]
  - OVERDOSE [None]
